FAERS Safety Report 15319397 (Version 1)
Quarter: 2018Q3

REPORT INFORMATION
  Report Type: Report from Study
  Country: None (occurrence: CA)
  Receive Date: 20180827
  Receipt Date: 20180827
  Transmission Date: 20181010
  Serious: Yes (Other)
  Sender: FDA-Public Use
  Company Number: CA-ABBVIE-18K-028-2419304-00

PATIENT
  Sex: Female

DRUGS (1)
  1. HUMIRA [Suspect]
     Active Substance: ADALIMUMAB
     Indication: HIDRADENITIS
     Route: 058
     Dates: start: 20170428, end: 201803

REACTIONS (7)
  - Scar [Unknown]
  - Sinusitis [Recovered/Resolved]
  - Hidradenitis [Not Recovered/Not Resolved]
  - Infection [Recovered/Resolved]
  - Gastroenteritis viral [Recovered/Resolved]
  - Chest wall abscess [Recovered/Resolved]
  - Vasculitis [Recovered/Resolved]

NARRATIVE: CASE EVENT DATE: 2018
